FAERS Safety Report 8964079 (Version 1)
Quarter: 2012Q4

REPORT INFORMATION
  Report Type: 
  Country: GB (occurrence: GB)
  Receive Date: 20121213
  Receipt Date: 20121213
  Transmission Date: 20130627
  Serious: Yes (Hospitalization)
  Sender: FDA-Public Use
  Company Number: GB-B.I. PHARMACEUTICALS,INC./RIDGEFIELD-2012-UK-01912UK

PATIENT
  Sex: Female

DRUGS (1)
  1. PRADAXA [Suspect]

REACTIONS (1)
  - Adverse event [Unknown]
